FAERS Safety Report 21296787 (Version 1)
Quarter: 2022Q3

REPORT INFORMATION
  Report Type: Spontaneous
  Country: CA (occurrence: CA)
  Receive Date: 20220906
  Receipt Date: 20220906
  Transmission Date: 20221027
  Serious: Yes (Other)
  Sender: FDA-Public Use
  Company Number: CA-SAMSUNG BIOEPIS-SB-2022-21773

PATIENT
  Age: 34 Year
  Sex: Female
  Weight: 66 kg

DRUGS (2)
  1. INFLIXIMAB [Suspect]
     Active Substance: INFLIXIMAB
     Indication: Rheumatoid arthritis
     Route: 042
  2. INFLIXIMAB [Suspect]
     Active Substance: INFLIXIMAB
     Indication: Ankylosing spondylitis
     Route: 042

REACTIONS (17)
  - Decreased appetite [Recovered/Resolved]
  - Disease recurrence [Recovered/Resolved]
  - Ehlers-Danlos syndrome [Recovered/Resolved]
  - Fatigue [Recovered/Resolved]
  - Fluid retention [Recovered/Resolved]
  - Hypersomnia [Recovered/Resolved]
  - Mast cell activation syndrome [Recovered/Resolved]
  - Nasal congestion [Recovered/Resolved]
  - Nasopharyngitis [Recovered/Resolved]
  - Nausea [Recovered/Resolved]
  - Postural orthostatic tachycardia syndrome [Recovered/Resolved]
  - Rash [Recovered/Resolved]
  - Raynaud^s phenomenon [Recovered/Resolved]
  - Somnolence [Recovered/Resolved]
  - Vomiting [Recovered/Resolved]
  - Weight increased [Recovered/Resolved]
  - Off label use [Recovered/Resolved]
